FAERS Safety Report 4700111-7 (Version None)
Quarter: 2005Q2

REPORT INFORMATION
  Report Type: 
  Country: None (occurrence: None)
  Receive Date: 20050624
  Receipt Date: 20050624
  Transmission Date: 20051028
  Serious: Yes (Death)
  Sender: FDA-Public Use
  Company Number: None

PATIENT
  Sex: Male
  Weight: 162.6 kg

DRUGS (2)
  1. GEMCITABINE [Suspect]
     Dosage: 3000 MG/M2
     Dates: start: 20050519
  2. PACLITAXEL [Suspect]
     Dosage: 150 MG/M2 IV D1 AND 15 Q 28 DAYS
     Route: 042

REACTIONS (5)
  - CARDIO-RESPIRATORY ARREST [None]
  - IATROGENIC INJURY [None]
  - PAIN [None]
  - PNEUMOTHORAX [None]
  - URINARY INCONTINENCE [None]
